FAERS Safety Report 24166073 (Version 1)
Quarter: 2024Q3

REPORT INFORMATION
  Report Type: Report from Study
  Country: CO (occurrence: CO)
  Receive Date: 20240802
  Receipt Date: 20240802
  Transmission Date: 20241017
  Serious: Yes (Hospitalization, Other)
  Sender: CIPLA
  Company Number: CO-CIPLA (EU) LIMITED-2024CO02895

PATIENT

DRUGS (4)
  1. LENALIDOMIDE [Suspect]
     Active Substance: LENALIDOMIDE
     Indication: Plasma cell myeloma
     Dosage: 10 MILLIGRAM, QD (1 EVERY 24 HOURS)
     Route: 048
  2. ACYCLOVIR [Concomitant]
     Active Substance: ACYCLOVIR
     Indication: Pain
     Dosage: 200 MILLIGRAM, UNK
     Route: 048
  3. CEFEPIME [Concomitant]
     Active Substance: CEFEPIME HYDROCHLORIDE
     Indication: Infection
     Dosage: 1 GRAM, UNK (INJECTABLE)
     Route: 065
     Dates: start: 20240301
  4. LEVOFLOXACIN [Concomitant]
     Active Substance: LEVOFLOXACIN
     Indication: Infection
     Dosage: 500 MILLIGRAM, UNK
     Route: 048
     Dates: start: 20240301

REACTIONS (2)
  - COVID-19 pneumonia [Recovering/Resolving]
  - Superinfection bacterial [Recovering/Resolving]

NARRATIVE: CASE EVENT DATE: 20240301
